FAERS Safety Report 8585676 (Version 2)
Quarter: 2013Q1

REPORT INFORMATION
  Report Type: Spontaneous
  Country: US (occurrence: US)
  Receive Date: 20120530
  Receipt Date: 20130124
  Transmission Date: 20140127
  Serious: Yes (Hospitalization)
  Sender: FDA-Public Use
  Company Number: US-GLAXOSMITHKLINE-A0971511A

PATIENT
  Age: 47 Year
  Sex: Female

DRUGS (3)
  1. FLOLAN [Suspect]
     Indication: PULMONARY ARTERIAL HYPERTENSION
     Dosage: 91NGKM CONTINUOUS
     Route: 042
     Dates: start: 20100727
  2. REVATIO [Concomitant]
     Dosage: 60MG THREE TIMES PER DAY
  3. WARFARIN [Concomitant]

REACTIONS (10)
  - Dialysis [Unknown]
  - Dizziness [Unknown]
  - Drug administration error [Recovered/Resolved]
  - Flushing [Recovered/Resolved]
  - Palpitations [Recovered/Resolved]
  - Feeling abnormal [Recovered/Resolved]
  - Infusion site erythema [Not Recovered/Not Resolved]
  - Infusion site pain [Not Recovered/Not Resolved]
  - Device infusion issue [Unknown]
  - Overdose [Unknown]
